FAERS Safety Report 11512257 (Version 2)
Quarter: 2016Q2

REPORT INFORMATION
  Report Type: Spontaneous
  Country: US (occurrence: US)
  Receive Date: 20150916
  Receipt Date: 20160516
  Transmission Date: 20160815
  Serious: Yes (Other)
  Sender: FDA-Public Use
  Company Number: US-ASTRAZENECA-2015SE86957

PATIENT
  Age: 29760 Day
  Sex: Female
  Weight: 58.1 kg

DRUGS (23)
  1. ARIMIDEX [Suspect]
     Active Substance: ANASTROZOLE
     Route: 048
     Dates: start: 20110101, end: 201506
  2. ERGOCALCIFEROL. [Concomitant]
     Active Substance: ERGOCALCIFEROL
  3. ASPIRIN. [Concomitant]
     Active Substance: ASPIRIN
  4. SILVER [Concomitant]
     Active Substance: SILVER
  5. XARELTO [Concomitant]
     Active Substance: RIVAROXABAN
     Indication: PROPHYLAXIS
     Dates: start: 2013
  6. GELNIQUE [Concomitant]
     Active Substance: OXYBUTYNIN CHLORIDE
  7. ARIMIDEX [Suspect]
     Active Substance: ANASTROZOLE
     Route: 048
     Dates: start: 2010
  8. IBRANCE [Suspect]
     Active Substance: PALBOCICLIB
     Indication: HEPATIC NEOPLASM
     Dosage: 125MG, CAPSULES, ONE A DAY FOR THREE WEEKS THEN OFF 7 DAYS
     Route: 048
     Dates: start: 201509
  9. ADVAIR HFA [Concomitant]
     Active Substance: FLUTICASONE PROPIONATE\SALMETEROL XINAFOATE
  10. MELOXICAM. [Concomitant]
     Active Substance: MELOXICAM
  11. SINGULAIR [Concomitant]
     Active Substance: MONTELUKAST SODIUM
  12. ULTRAM [Concomitant]
     Active Substance: TRAMADOL HYDROCHLORIDE
  13. IBRANCE [Suspect]
     Active Substance: PALBOCICLIB
     Indication: BENIGN BONE NEOPLASM
     Dosage: 125MG, CAPSULES, ONE A DAY FOR THREE WEEKS THEN OFF 7 DAYS
     Route: 048
     Dates: start: 201509
  14. ICAPS [Concomitant]
     Active Substance: MINERALS\VITAMINS
  15. LYSINE [Concomitant]
     Active Substance: LYSINE
  16. VITAMIN D [Concomitant]
     Active Substance: CHOLECALCIFEROL
     Indication: BONE DISORDER
     Dates: start: 201509
  17. METOPROLOL. [Suspect]
     Active Substance: METOPROLOL
     Indication: BLOOD PRESSURE ABNORMAL
     Dosage: 25MG HALF IN MORNNIG AND HALF AT NIGHT
     Route: 065
     Dates: start: 2013
  18. XGEVA [Concomitant]
     Active Substance: DENOSUMAB
     Indication: BONE DISORDER
     Dosage: SHOT ONCE A MONTH
     Dates: start: 201509
  19. DEXAMETHASONE. [Concomitant]
     Active Substance: DEXAMETHASONE
  20. KEFLEX [Concomitant]
     Active Substance: CEPHALEXIN
  21. CALCIUM WITH VITMAIN D AND K [Concomitant]
  22. FISH OIL [Concomitant]
     Active Substance: FISH OIL
  23. FLONASE [Concomitant]
     Active Substance: FLUTICASONE PROPIONATE

REACTIONS (5)
  - Bladder mass [Unknown]
  - Metastases to liver [Unknown]
  - Haematuria [Unknown]
  - Metastases to bone [Unknown]
  - Haemangioma [Unknown]

NARRATIVE: CASE EVENT DATE: 20150715
